FAERS Safety Report 16860361 (Version 1)
Quarter: 2019Q3

REPORT INFORMATION
  Report Type: Spontaneous
  Country: FR (occurrence: FR)
  Receive Date: 20190927
  Receipt Date: 20190927
  Transmission Date: 20191005
  Serious: Yes (Hospitalization, Other)
  Sender: FDA-Public Use
  Company Number: FR-MYLANLABS-2019M1090333

PATIENT
  Age: 19 Year
  Sex: Female

DRUGS (3)
  1. PREDNISOLONE. [Suspect]
     Active Substance: PREDNISOLONE
     Indication: VOCAL CORD DYSFUNCTION
     Route: 048
  2. SALBUTAMOL [Suspect]
     Active Substance: ALBUTEROL
     Indication: VOCAL CORD DYSFUNCTION
     Dosage: SEVERAL PUFFS
     Route: 065
  3. METHYLPREDNISOLONE. [Suspect]
     Active Substance: METHYLPREDNISOLONE
     Indication: VOCAL CORD DYSFUNCTION
     Route: 065

REACTIONS (2)
  - Type I hypersensitivity [Unknown]
  - Drug ineffective [Unknown]
